FAERS Safety Report 11428112 (Version 1)
Quarter: 2015Q3

REPORT INFORMATION
  Report Type: Spontaneous
  Country: US (occurrence: None)
  Receive Date: 20150827
  Receipt Date: 20150827
  Transmission Date: 20151125
  Serious: No
  Sender: FDA-Public Use
  Company Number: None

PATIENT
  Age: 68 Year
  Sex: Male
  Weight: 90.72 kg

DRUGS (3)
  1. VOLTAREN [Concomitant]
     Active Substance: DICLOFENAC SODIUM
  2. DIOVAN [Concomitant]
     Active Substance: VALSARTAN
  3. LEVOTHYROXINE LANNETT [Suspect]
     Active Substance: LEVOTHYROXINE
     Indication: THYROID DISORDER
     Dosage: 30 TAB / 4 PREFILLS
     Route: 048
     Dates: start: 20140901, end: 20150813

REACTIONS (5)
  - Rash [None]
  - Pain of skin [None]
  - Pain [None]
  - Erythema [None]
  - Pruritus [None]

NARRATIVE: CASE EVENT DATE: 20150101
